FAERS Safety Report 8470497-9 (Version None)
Quarter: 2012Q2

REPORT INFORMATION
  Report Type: 
  Country: None (occurrence: None)
  Receive Date: 20120627
  Receipt Date: 20110615
  Transmission Date: 20120825
  Serious: No
  Sender: FDA-Public Use
  Company Number: US-MYLANLABS-2011S1012533

PATIENT
  Age: 74 Year
  Sex: Female
  Weight: 54.43 kg

DRUGS (3)
  1. POTASSIUM CHLORIDE [Concomitant]
  2. PERFOROMIST [Suspect]
     Indication: CHRONIC OBSTRUCTIVE PULMONARY DISEASE
     Route: 055
     Dates: start: 20110601, end: 20110615
  3. PREDNISONE TAB [Concomitant]

REACTIONS (8)
  - INSOMNIA [None]
  - CHEST PAIN [None]
  - HEADACHE [None]
  - ORAL PAIN [None]
  - TONGUE ULCERATION [None]
  - CHEST DISCOMFORT [None]
  - STOMATITIS [None]
  - HEART RATE IRREGULAR [None]
